FAERS Safety Report 21326628 (Version 1)
Quarter: 2022Q3

REPORT INFORMATION
  Report Type: Spontaneous
  Country: GB (occurrence: GB)
  Receive Date: 20220913
  Receipt Date: 20220913
  Transmission Date: 20221027
  Serious: Yes (Other)
  Sender: FDA-Public Use
  Company Number: GB-SUN PHARMACEUTICAL INDUSTRIES LTD-2022R1-354481

PATIENT
  Sex: Male

DRUGS (1)
  1. MORPHINE [Suspect]
     Active Substance: MORPHINE
     Indication: Cancer pain
     Dosage: 300 MILLIGRAM
     Route: 048

REACTIONS (2)
  - Drug dependence [Unknown]
  - Drug tolerance [Unknown]
